FAERS Safety Report 12441986 (Version 3)
Quarter: 2016Q2

REPORT INFORMATION
  Report Type: Report from Study
  Country: US (occurrence: US)
  Receive Date: 20160607
  Receipt Date: 20160623
  Transmission Date: 20160815
  Serious: Yes (Hospitalization, Other)
  Sender: FDA-Public Use
  Company Number: US-GILEAD-2016-0210388

PATIENT
  Age: 54 Year
  Sex: Female

DRUGS (7)
  1. TADALAFIL [Concomitant]
     Active Substance: TADALAFIL
  2. ADCIRCA [Concomitant]
     Active Substance: TADALAFIL
  3. REMODULIN [Concomitant]
     Active Substance: TREPROSTINIL
  4. AMBRISENTAN [Suspect]
     Active Substance: AMBRISENTAN
     Indication: PRODUCT USED FOR UNKNOWN INDICATION
     Dosage: 5 MG, QD
     Route: 065
     Dates: start: 20151019
  5. DIGOXIN. [Concomitant]
     Active Substance: DIGOXIN
  6. FOLIC ACID. [Concomitant]
     Active Substance: FOLIC ACID
  7. PROTONIX                           /00661201/ [Concomitant]
     Active Substance: OMEPRAZOLE

REACTIONS (7)
  - Septic shock [Unknown]
  - Pyrexia [Unknown]
  - Pneumonia [Recovered/Resolved]
  - Pulmonary hypertension [Unknown]
  - Application site pruritus [Unknown]
  - Musculoskeletal pain [Unknown]
  - Device related infection [Recovered/Resolved]
